FAERS Safety Report 9795325 (Version 2)
Quarter: 2015Q4

REPORT INFORMATION
  Report Type: Spontaneous
  Country: US (occurrence: US)
  Receive Date: 20140103
  Receipt Date: 20151016
  Transmission Date: 20160305
  Serious: No
  Sender: FDA-Public Use
  Company Number: US-009507513-1401USA000179

PATIENT
  Sex: Female

DRUGS (6)
  1. LITHIUM. [Concomitant]
     Active Substance: LITHIUM
     Dosage: UNK
  2. COPEGUS [Suspect]
     Active Substance: RIBAVIRIN
     Dosage: 1 DF BID (600 MG AT AM, 400 MG AT PM)
  3. COPEGUS [Suspect]
     Active Substance: RIBAVIRIN
     Dosage: 2 IN THE MORNING, 2 IN THE EVENING, 4 TOTAL (200 MG,2 IN 12 HR)
     Route: 048
     Dates: start: 2013
  4. PEGASYS [Suspect]
     Active Substance: PEGINTERFERON ALFA-2A
     Indication: CHRONIC HEPATITIS C
     Dosage: 180 MICROGRAM, ONCE IN A WEEK
     Route: 058
     Dates: start: 20131101
  5. COPEGUS [Suspect]
     Active Substance: RIBAVIRIN
     Indication: CHRONIC HEPATITIS C
     Dosage: 2 IN THE MORNING, 2 IN THE EVENING, 4 TOTAL (200 MG,2 IN 12 HR)
     Route: 048
     Dates: start: 20131101, end: 2013
  6. VICTRELIS [Suspect]
     Active Substance: BOCEPREVIR
     Dosage: 800 MG, TID
     Route: 048

REACTIONS (8)
  - Constipation [Unknown]
  - Nausea [Unknown]
  - Pain [Unknown]
  - Feeling abnormal [Unknown]
  - Weight decreased [Unknown]
  - Decreased appetite [Unknown]
  - Dysgeusia [Unknown]
  - Fatigue [Unknown]

NARRATIVE: CASE EVENT DATE: 2013
